FAERS Safety Report 6455471-6 (Version None)
Quarter: 2009Q4

REPORT INFORMATION
  Report Type: 
  Country: None (occurrence: None)
  Receive Date: 20091125
  Receipt Date: 20091030
  Transmission Date: 20100525
  Serious: No
  Sender: FDA-Public Use
  Company Number: US-ABBOTT-09P-163-0603968-00

PATIENT
  Sex: Female
  Weight: 67.192 kg

DRUGS (8)
  1. SIMCOR [Suspect]
     Indication: BLOOD CHOLESTEROL INCREASED
     Dates: start: 20091016, end: 20091027
  2. FISH OIL [Concomitant]
     Indication: ROUTINE HEALTH MAINTENANCE
  3. CO Q 10 [Concomitant]
     Indication: ROUTINE HEALTH MAINTENANCE
  4. MULTIPLE VITAMINS [Concomitant]
     Indication: ROUTINE HEALTH MAINTENANCE
  5. CALCIUM [Concomitant]
     Indication: OSTEOPENIA
  6. LOTREL [Concomitant]
     Indication: HYPERTENSION
  7. HYDROCHLOROTHIAZIDE [Concomitant]
     Indication: HYPERTENSION
  8. INSULIN [Concomitant]
     Indication: DIABETES MELLITUS

REACTIONS (5)
  - ASTHENIA [None]
  - DIARRHOEA [None]
  - LETHARGY [None]
  - PAIN [None]
  - VOMITING [None]
